FAERS Safety Report 7493154-4 (Version None)
Quarter: 2011Q2

REPORT INFORMATION
  Report Type: 
  Country: None (occurrence: None)
  Receive Date: 20110511
  Receipt Date: 20110427
  Transmission Date: 20111010
  Serious: Yes (Hospitalization)
  Sender: FDA-Public Use
  Company Number: 2011SP007536

PATIENT
  Age: 69 Year
  Sex: Male
  Weight: 63.7 kg

DRUGS (10)
  1. TOPAMAX [Concomitant]
  2. ALBIS [Concomitant]
  3. XANAX [Concomitant]
  4. MAGNESIUM OXIDE [Concomitant]
  5. GLIATILIN [Concomitant]
  6. TEMOZOLOMIDE [Suspect]
     Indication: GLIOBLASTOMA MULTIFORME
     Dosage: 120 MG, PO
     Route: 048
     Dates: start: 20081229, end: 20090223
  7. DEXAMETHASONE [Concomitant]
  8. NIMOTOP [Concomitant]
  9. PLETAL [Concomitant]
  10. TRENTAL [Concomitant]

REACTIONS (2)
  - PNEUMONIA [None]
  - RADIATION NECROSIS [None]
